FAERS Safety Report 12093966 (Version 1)
Quarter: 2016Q1

REPORT INFORMATION
  Report Type: Spontaneous
  Country: ES (occurrence: ES)
  Receive Date: 20160219
  Receipt Date: 20160219
  Transmission Date: 20160526
  Serious: Yes (Other)
  Sender: FDA-Public Use
  Company Number: ES-VIIV HEALTHCARE LIMITED-ES2016GSK021792

PATIENT
  Age: 34 Year
  Sex: Male

DRUGS (18)
  1. METHOTREXATE [Suspect]
     Active Substance: METHOTREXATE
     Indication: PLASMABLASTIC LYMPHOMA
     Dosage: DAY 1 OF EACH CYCLE
     Route: 037
  2. RALTEGRAVIR. [Suspect]
     Active Substance: RALTEGRAVIR
     Indication: ANTIRETROVIRAL THERAPY
  3. ETOPOSIDE. [Concomitant]
     Active Substance: ETOPOSIDE
     Indication: CHEMOTHERAPY
  4. CYCLOPHOSPHAMIDE. [Suspect]
     Active Substance: CYCLOPHOSPHAMIDE
     Indication: CHEMOTHERAPY
     Dosage: EVERY 21 DAYS
  5. EMTRICITABINE [Suspect]
     Active Substance: EMTRICITABINE
     Indication: ANTIRETROVIRAL THERAPY
  6. PREDNISONE. [Suspect]
     Active Substance: PREDNISONE
     Indication: CHEMOTHERAPY
  7. CYTARABINE. [Concomitant]
     Active Substance: CYTARABINE
     Indication: CHEMOTHERAPY
  8. TRIMETHOPRIM + SULFAMETHOXAZOLE [Suspect]
     Active Substance: SULFAMETHOXAZOLE\TRIMETHOPRIM
     Indication: PROPHYLAXIS
  9. MELPHALAN [Concomitant]
     Active Substance: MELPHALAN
     Indication: CHEMOTHERAPY
  10. VINCRISTINE SULFATE. [Suspect]
     Active Substance: VINCRISTINE SULFATE
     Indication: CHEMOTHERAPY
  11. MARAVIROC [Suspect]
     Active Substance: MARAVIROC
     Indication: ANTIRETROVIRAL THERAPY
  12. BICNU [Concomitant]
     Active Substance: CARMUSTINE
     Indication: CHEMOTHERAPY
  13. DOXORUBICINE [Suspect]
     Active Substance: DOXORUBICIN
     Indication: CHEMOTHERAPY
     Dosage: EVERY 21 DAYS
  14. ACYCLOVIR. [Suspect]
     Active Substance: ACYCLOVIR
     Indication: PROPHYLAXIS
  15. TENOFOVIR DISOPROXIL FUMARATE. [Suspect]
     Active Substance: TENOFOVIR DISOPROXIL FUMARATE
     Indication: ANTIRETROVIRAL THERAPY
  16. CYTARABINE. [Suspect]
     Active Substance: CYTARABINE
     Indication: PLASMABLASTIC LYMPHOMA
     Dosage: DAY 1 OF EACH CYCLE
     Route: 037
  17. HYDROCORTISONE. [Suspect]
     Active Substance: HYDROCORTISONE
     Indication: PLASMABLASTIC LYMPHOMA
     Dosage: DAY 1 OF EACH CYCLE
     Route: 037
  18. BORTEZOMIB [Suspect]
     Active Substance: BORTEZOMIB
     Indication: PLASMABLASTIC LYMPHOMA
     Dosage: 1.3 MG/M2, ON DAYS 1, 4, 8 AND 11)
     Route: 058

REACTIONS (6)
  - Anaemia [Unknown]
  - Peripheral sensory neuropathy [Unknown]
  - Neutropenia [Unknown]
  - Stem cell transplant [None]
  - Haematotoxicity [None]
  - Toxicity to various agents [None]
